FAERS Safety Report 10174969 (Version 1)
Quarter: 2014Q2

REPORT INFORMATION
  Report Type: Report from Study
  Country: NL (occurrence: NL)
  Receive Date: 20140515
  Receipt Date: 20140515
  Transmission Date: 20141212
  Serious: Yes (Hospitalization)
  Sender: FDA-Public Use
  Company Number: PHHO2014NL006953

PATIENT
  Sex: 0

DRUGS (2)
  1. STI571 [Suspect]
     Indication: GASTROINTESTINAL STROMAL TUMOUR
     Dosage: 400 MG, QD
     Route: 048
     Dates: start: 20140422, end: 20140508
  2. BYL719 [Suspect]
     Indication: GASTROINTESTINAL STROMAL TUMOUR
     Dosage: 350 MG, QD
     Route: 048
     Dates: start: 20140422, end: 20140508

REACTIONS (1)
  - Renal impairment [Recovering/Resolving]
